FAERS Safety Report 9982090 (Version 1)
Quarter: 2014Q1

REPORT INFORMATION
  Report Type: Report from Study
  Country: US (occurrence: US)
  Receive Date: 20140307
  Receipt Date: 20140307
  Transmission Date: 20141002
  Serious: No
  Sender: FDA-Public Use
  Company Number: US-ABBVIE-13P-163-1181948-00

PATIENT
  Age: 32 Year
  Sex: Female

DRUGS (6)
  1. HUMIRA [Suspect]
     Indication: PSORIATIC ARTHROPATHY
     Dates: start: 20131112, end: 20131112
  2. HUMIRA [Suspect]
     Dates: start: 20131119, end: 20131119
  3. HUMIRA [Suspect]
     Dates: start: 20131210, end: 20131210
  4. HUMIRA [Suspect]
  5. OMEGA 3 [Concomitant]
     Indication: ARTHROPATHY
  6. GLUCOSAMINE CHONDROITIN MSM [Concomitant]
     Indication: PRODUCT USED FOR UNKNOWN INDICATION

REACTIONS (6)
  - Sensation of foreign body [Not Recovered/Not Resolved]
  - Migraine [Unknown]
  - Dysgeusia [Unknown]
  - Upper respiratory tract congestion [Unknown]
  - Sneezing [Unknown]
  - Chest discomfort [Unknown]
